FAERS Safety Report 5792527-5 (Version None)
Quarter: 2008Q2

REPORT INFORMATION
  Report Type: 
  Country: None (occurrence: None)
  Receive Date: 20080626
  Receipt Date: 20080616
  Transmission Date: 20081010
  Serious: Yes (Life-Threatening, Hospitalization, Other)
  Sender: FDA-Public Use
  Company Number: JP-ABBOTT-08P-087-0441081-00

PATIENT
  Sex: Male

DRUGS (6)
  1. LEUPLIN SR FOR INJECTION KIT [Suspect]
     Indication: PROSTATE CANCER STAGE II
     Route: 058
     Dates: start: 20050614, end: 20050614
  2. LEUPLIN SR FOR INJECTION KIT [Suspect]
     Route: 058
     Dates: start: 20071026, end: 20071130
  3. LEUPLIN SR FOR INJECTION KIT [Suspect]
     Route: 058
     Dates: start: 20071130, end: 20071130
  4. LEUPLIN SR FOR INJECTION KIT [Suspect]
     Dates: start: 20050329
  5. BICALUTAMIDE [Suspect]
     Indication: PROSTATE CANCER STAGE II
     Route: 048
     Dates: start: 20071026, end: 20080131
  6. CHLORMADINONE ACETATE TAB [Concomitant]
     Indication: DRUG USE FOR UNKNOWN INDICATION
     Dates: start: 20050329

REACTIONS (6)
  - ANOREXIA [None]
  - ANURIA [None]
  - CARDIAC FAILURE [None]
  - OXYGEN SATURATION DECREASED [None]
  - PERONEAL NERVE PALSY [None]
  - PLEURAL EFFUSION [None]
